FAERS Safety Report 4369703-1 (Version None)
Quarter: 2004Q2

REPORT INFORMATION
  Report Type: 
  Country: None (occurrence: None)
  Receive Date: 20040527
  Receipt Date: 20040520
  Transmission Date: 20050107
  Serious: Yes (Hospitalization)
  Sender: FDA-Public Use
  Company Number: 04P-087-0257497-00

PATIENT
  Age: 63 Year
  Sex: Male

DRUGS (10)
  1. WARFARIN             (WARFARIN SODIUM) [Suspect]
     Dosage: 2 MG, 1 IN 1 D, PER ORAL
     Route: 048
     Dates: end: 20040303
  2. LANSOPRAZOLE [Suspect]
     Indication: REFLUX OESOPHAGITIS
     Dosage: 15 MG, 1 IN 1 D, PER ORAL
     Route: 048
     Dates: start: 20040213
  3. FLUCONAZOLE [Concomitant]
  4. VINCRISTINE SULFATE [Concomitant]
  5. DOXORUBICIN HYDROCHLORIDE [Concomitant]
  6. CYCLOPHOSPHAMIDE [Concomitant]
  7. RANIMUSTINE [Concomitant]
  8. PIPERACILLIN SODIUM [Concomitant]
  9. SULPERAZON [Concomitant]
  10. LENOGRASTIM [Concomitant]

REACTIONS (5)
  - ADULT T-CELL LYMPHOMA/LEUKAEMIA [None]
  - DRUG INTERACTION [None]
  - PROTHROMBIN TIME PROLONGED [None]
  - PYREXIA [None]
  - REFLUX OESOPHAGITIS [None]
